FAERS Safety Report 5999292-7 (Version None)
Quarter: 2008Q4

REPORT INFORMATION
  Report Type: 
  Country: None (occurrence: None)
  Receive Date: 20081215
  Receipt Date: 20081210
  Transmission Date: 20090506
  Serious: Yes (Hospitalization, Other)
  Sender: FDA-Public Use
  Company Number: FR-BRISTOL-MYERS SQUIBB COMPANY-14441265

PATIENT
  Age: 82 Year
  Sex: Female

DRUGS (15)
  1. COUMADIN [Suspect]
     Indication: PROPHYLAXIS
     Dosage: 2 TABLETS
     Route: 048
  2. ARIXTRA [Suspect]
     Route: 058
     Dates: start: 20081003, end: 20081020
  3. SIMVASTATIN [Suspect]
     Indication: DYSLIPIDAEMIA
     Dosage: 1 DOSAGE FORM = 1 UNIT
     Route: 048
  4. ALLOPURINOL [Suspect]
     Indication: HYPERURICAEMIA
     Dosage: 1 DOSAGE FORM = 1 UNIT
     Route: 048
  5. CITALOPRAM HYDROBROMIDE [Suspect]
     Indication: DEPRESSION
     Dosage: 1 DOSAGE FORM = 1 UNIT
     Route: 048
  6. FUROSEMIDE [Concomitant]
  7. MEDIATOR [Concomitant]
  8. SPIRONOLACTONE [Concomitant]
  9. DILTIAZEM CD [Concomitant]
  10. APIDRA [Concomitant]
  11. LANTUS [Concomitant]
  12. ZOPICLONE [Concomitant]
  13. TRIVASTAL [Concomitant]
  14. MACROGOL 3350 [Concomitant]
  15. ARIMIDEX [Concomitant]

REACTIONS (5)
  - ANAEMIA [None]
  - HAEMATOMA [None]
  - INTERNATIONAL NORMALISED RATIO INCREASED [None]
  - RENAL FAILURE [None]
  - WOUND HAEMORRHAGE [None]
